FAERS Safety Report 12828760 (Version 4)
Quarter: 2019Q4

REPORT INFORMATION
  Report Type: Spontaneous
  Country: US (occurrence: US)
  Receive Date: 20161007
  Receipt Date: 20191121
  Transmission Date: 20200122
  Serious: Yes (Congenital Anomaly, Other)
  Sender: FDA-Public Use
  Company Number: US-SA-2015SA183553

PATIENT
  Age: 35 Year
  Sex: Female

DRUGS (2)
  1. AUBAGIO [Suspect]
     Active Substance: TERIFLUNOMIDE
     Indication: RELAPSING-REMITTING MULTIPLE SCLEROSIS
     Dosage: 14 MG,UNK
     Route: 065
  2. AUBAGIO [Suspect]
     Active Substance: TERIFLUNOMIDE
     Dosage: 14 MG, QD
     Route: 065
     Dates: start: 201811, end: 201902

REACTIONS (5)
  - Headache [Unknown]
  - Exposure during pregnancy [Unknown]
  - Multiple sclerosis relapse [Unknown]
  - Abortion spontaneous [Unknown]
  - Congenital arterial malformation [Unknown]

NARRATIVE: CASE EVENT DATE: 201812
